FAERS Safety Report 7479849-7 (Version None)
Quarter: 2011Q2

REPORT INFORMATION
  Report Type: 
  Country: None (occurrence: None)
  Receive Date: 20110515
  Receipt Date: 20110502
  Transmission Date: 20111010
  Serious: Yes (Congenital Anomaly)
  Sender: FDA-Public Use
  Company Number: US-MYLANLABS-2011S1009356

PATIENT

DRUGS (1)
  1. METHOTREXATE [Suspect]
     Indication: SYSTEMIC LUPUS ERYTHEMATOSUS
     Route: 064

REACTIONS (10)
  - VENTRICULAR SEPTAL DEFECT [None]
  - MULTIPLE CONGENITAL ABNORMALITIES [None]
  - EAR MALFORMATION [None]
  - MICROGNATHIA [None]
  - INTESTINAL MALROTATION [None]
  - RESPIRATORY TRACT MALFORMATION [None]
  - PULMONARY ARTERY ATRESIA [None]
  - CONGENITAL HYDRONEPHROSIS [None]
  - DRUG EXPOSURE DURING PREGNANCY [None]
  - CONGENITAL ARTERIAL MALFORMATION [None]
